FAERS Safety Report 14964468 (Version 1)
Quarter: 2018Q2

REPORT INFORMATION
  Report Type: Spontaneous
  Country: FR (occurrence: FR)
  Receive Date: 20180601
  Receipt Date: 20180601
  Transmission Date: 20180711
  Serious: Yes (Hospitalization)
  Sender: FDA-Public Use
  Company Number: FR-TEVA-2018-FR-900876

PATIENT
  Age: 82 Year
  Sex: Male
  Weight: 98 kg

DRUGS (9)
  1. TRIATEC 10 MG, SCORED TABLET [Suspect]
     Active Substance: RAMIPRIL
     Indication: HYPERTENSION
     Dosage: 1 DOSAGE FORMS DAILY;
     Route: 048
     Dates: start: 2013, end: 20180305
  2. ALLOPURINOL. [Suspect]
     Active Substance: ALLOPURINOL
     Indication: GOUT
     Dosage: 100 MILLIGRAM DAILY;
     Route: 048
     Dates: start: 2010, end: 20180305
  3. PYOSTACINE 500 MG, TABLET COATED SCORED [Suspect]
     Active Substance: PRISTINAMYCIN
     Indication: INFECTIOUS PLEURAL EFFUSION
     Dosage: 3 GRAM DAILY;
     Route: 048
     Dates: start: 20180105, end: 20180120
  4. COZAAR [Suspect]
     Active Substance: LOSARTAN POTASSIUM
     Indication: HYPERTENSION
     Dosage: 1 DOSAGE FORMS DAILY;
     Route: 048
     Dates: start: 2013, end: 20180305
  5. LASILIX 40 MG, SCORED TABLET [Suspect]
     Active Substance: FUROSEMIDE
     Indication: HYPERTENSIVE HEART DISEASE
     Dosage: 1 DOSAGE FORMS DAILY;
     Route: 048
  6. TAHOR [Suspect]
     Active Substance: ATORVASTATIN CALCIUM
     Indication: CARDIOVASCULAR EVENT PROPHYLAXIS
     Dosage: 1 DOSAGE FORMS DAILY;
     Route: 048
     Dates: start: 2013, end: 20180305
  7. METHOTREXATE. [Concomitant]
     Active Substance: METHOTREXATE
     Indication: PSORIATIC ARTHROPATHY
     Route: 048
     Dates: start: 2007, end: 201712
  8. TEMERIT 5 MG, QUADRIS?CABLE TABLET [Suspect]
     Active Substance: NEBIVOLOL HYDROCHLORIDE
     Indication: HYPERTENSIVE HEART DISEASE
     Dosage: 1 DOSAGE FORMS DAILY;
     Route: 048
     Dates: start: 2013, end: 20180308
  9. PREVISCAN 20 MG, SCORED TABLET (FLUINDIONE) [Suspect]
     Active Substance: FLUINDIONE
     Indication: HYPERTENSIVE HEART DISEASE
     Dosage: UNKNOWN
     Route: 048
     Dates: start: 2013

REACTIONS (3)
  - Vasculitis necrotising [Not Recovered/Not Resolved]
  - Pruritus [Not Recovered/Not Resolved]
  - Rash papular [Not Recovered/Not Resolved]

NARRATIVE: CASE EVENT DATE: 201801
